FAERS Safety Report 9412843 (Version 3)
Quarter: 2013Q4

REPORT INFORMATION
  Report Type: Report from Study
  Country: GB (occurrence: GB)
  Receive Date: 20130722
  Receipt Date: 20131003
  Transmission Date: 20140711
  Serious: Yes (Hospitalization)
  Sender: FDA-Public Use
  Company Number: GB-GLAXOSMITHKLINE-B0908651A

PATIENT
  Age: 53 Year
  Sex: Female

DRUGS (6)
  1. OFATUMUMAB [Suspect]
     Indication: CHRONIC LYMPHOCYTIC LEUKAEMIA
     Dosage: 200MG CYCLIC
     Route: 042
     Dates: start: 20130314
  2. FLUDARABINE [Suspect]
     Indication: CHRONIC LYMPHOCYTIC LEUKAEMIA
     Dosage: 40MG CYCLIC
     Route: 048
     Dates: start: 20130314
  3. CYCLOPHOSPHAMIDE [Suspect]
     Indication: CHRONIC LYMPHOCYTIC LEUKAEMIA
     Dosage: 250MG CYCLIC
     Route: 048
     Dates: start: 20130314
  4. PENTAMIDINE [Concomitant]
     Indication: ANTIFUNGAL PROPHYLAXIS
  5. ACICLOVIR [Concomitant]
     Indication: ANTIVIRAL TREATMENT
     Dosage: 400MG TWICE PER DAY
  6. ALLOPURINOL [Concomitant]
     Dosage: 300MG PER DAY

REACTIONS (1)
  - Neutropenic sepsis [Recovered/Resolved]
